FAERS Safety Report 8002510-7 (Version None)
Quarter: 2011Q4

REPORT INFORMATION
  Report Type: 
  Country: None (occurrence: None)
  Receive Date: 20111222
  Receipt Date: 20111214
  Transmission Date: 20120403
  Serious: Yes (Other)
  Sender: FDA-Public Use
  Company Number: US-JNJFOC-20111207417

PATIENT
  Sex: Male

DRUGS (1)
  1. TUCKS INTERNAL SOOTHERS SUPPOSITORIES [Suspect]
     Indication: PRODUCT USED FOR UNKNOWN INDICATION
     Dosage: ONE AT NIGHT
     Route: 054

REACTIONS (1)
  - RECTAL HAEMORRHAGE [None]
